FAERS Safety Report 9415701 (Version 2)
Quarter: 2013Q3

REPORT INFORMATION
  Report Type: Spontaneous
  Country: US (occurrence: US)
  Receive Date: 20130723
  Receipt Date: 20130830
  Transmission Date: 20140515
  Serious: Yes (Other)
  Sender: FDA-Public Use
  Company Number: US-PFIZER INC-2013215009

PATIENT
  Age: 61 Year
  Sex: Female
  Weight: 63.5 kg

DRUGS (1)
  1. ZOLOFT [Suspect]
     Indication: DEPRESSION
     Dosage: 100 MG, UNK
     Dates: end: 2010

REACTIONS (6)
  - Non-Hodgkin^s lymphoma [Unknown]
  - Cervix carcinoma [Unknown]
  - Diabetes mellitus [Unknown]
  - Uterine disorder [Unknown]
  - Hypertension [Unknown]
  - Drug ineffective [Unknown]
